FAERS Safety Report 8281523-4 (Version None)
Quarter: 2012Q2

REPORT INFORMATION
  Report Type: 
  Country: None (occurrence: None)
  Receive Date: 20120410
  Receipt Date: 20120327
  Transmission Date: 20120825
  Serious: Yes (Other)
  Sender: FDA-Public Use
  Company Number: 08-AUR-04083

PATIENT
  Age: 78 Year
  Sex: Male
  Weight: 78 kg

DRUGS (10)
  1. EZETIMIBE [Suspect]
     Indication: PRODUCT USED FOR UNKNOWN INDICATION
     Dosage: 10 MG (10 MG , 1 IN 1 D), ORAL
     Route: 048
  2. AMIODARONE HCL [Suspect]
     Indication: PRODUCT USED FOR UNKNOWN INDICATION
     Dosage: 200 MG (200 MG, 1 IN 1 D)
  3. DIGOXIN [Suspect]
     Indication: PRODUCT USED FOR UNKNOWN INDICATION
     Dosage: 0.125 MG (0.125 MG, 1 IN 1 D)
  4. BISOPROLOL FUMARATE [Suspect]
     Indication: PRODUCT USED FOR UNKNOWN INDICATION
     Dosage: 2MG IN THE MORNING, 5MG LATER (7 MG, 1 D)
  5. FUROSEMIDE [Suspect]
     Indication: PRODUCT USED FOR UNKNOWN INDICATION
     Dosage: 120 MG (120 MG, 1 IN 1 D) 160 MG (80 MG, 2 IN 1 D)
  6. LANSOPRAZOLE [Suspect]
     Indication: PRODUCT USED FOR UNKNOWN INDICATION
     Dosage: 30 MG (30 MG, 1 IN 1 D)
  7. ASPIRIN [Suspect]
     Indication: PRODUCT USED FOR UNKNOWN INDICATION
     Dosage: 75 MG (75 MG, 1 IN 1 D)
  8. ACIPIMOX (ACIPIMOX) [Suspect]
     Indication: PRODUCT USED FOR UNKNOWN INDICATION
     Dosage: 250 MG (250 MG, 2 IN 1 D)
  9. PERINDOPRIL ERBUMINE [Suspect]
     Indication: PRODUCT USED FOR UNKNOWN INDICATION
     Dosage: 2 MG (2 MG, 1 IN 1 D)
  10. WARFARIN SODIUM [Concomitant]

REACTIONS (12)
  - FEELING ABNORMAL [None]
  - DIPLOPIA [None]
  - DIZZINESS [None]
  - PARAESTHESIA [None]
  - FATIGUE [None]
  - DYSPNOEA [None]
  - VENTRICULAR TACHYCARDIA [None]
  - HAEMODYNAMIC INSTABILITY [None]
  - VENOUS PRESSURE JUGULAR INCREASED [None]
  - LEFT VENTRICULAR DYSFUNCTION [None]
  - CARDIAC MURMUR [None]
  - OEDEMA [None]
